FAERS Safety Report 6557171-0 (Version None)
Quarter: 2010Q1

REPORT INFORMATION
  Report Type: 
  Country: None (occurrence: None)
  Receive Date: 20100127
  Receipt Date: 20100127
  Transmission Date: 20100710
  Serious: Yes (Hospitalization)
  Sender: FDA-Public Use
  Company Number: None

PATIENT
  Sex: Male
  Weight: 62.1 kg

DRUGS (8)
  1. CYCLOPHOSPHAMIDE [Suspect]
     Dosage: 1800 MG
  2. CYTARABINE [Suspect]
     Dosage: 1080 MG
  3. DEXAMETHASONE [Suspect]
     Dosage: 152 MG
  4. DOXORUBICIN HCL [Suspect]
     Dosage: 135 MG
  5. METHOTREXATE [Suspect]
     Dosage: 45 MG
  6. PEG-L- ASPARGINASE (K-H) [Suspect]
  7. THIOGUANINE [Suspect]
     Dosage: 1100 MG
  8. VINCRISTINE SULFATE [Suspect]
     Dosage: 0 MG

REACTIONS (2)
  - HEADACHE [None]
  - PYREXIA [None]
